FAERS Safety Report 24462074 (Version 1)
Quarter: 2024Q4

REPORT INFORMATION
  Report Type: Report from Study
  Country: US (occurrence: US)
  Receive Date: 20241018
  Receipt Date: 20241018
  Transmission Date: 20250115
  Serious: No
  Sender: ROCHE
  Company Number: US-ROCHE-3565393

PATIENT
  Age: 73 Year
  Sex: Female
  Weight: 83.91 kg

DRUGS (20)
  1. RITUXAN [Suspect]
     Active Substance: RITUXIMAB
     Indication: Pemphigus
     Route: 042
     Dates: start: 2023
  2. RITUXAN [Suspect]
     Active Substance: RITUXIMAB
     Indication: Pemphigus
     Route: 042
     Dates: start: 2020
  3. RITUXAN [Suspect]
     Active Substance: RITUXIMAB
     Indication: Pemphigus
  4. PREDNISONE [Concomitant]
     Active Substance: PREDNISONE
     Indication: Pemphigus
     Route: 048
     Dates: start: 20240426
  5. PREDNISONE [Concomitant]
     Active Substance: PREDNISONE
     Dosage: ONGOING WAS NO
     Route: 048
     Dates: start: 20240405
  6. PREDNISONE [Concomitant]
     Active Substance: PREDNISONE
     Dosage: ONGOING WAS NO
     Route: 048
  7. PREDNISONE [Concomitant]
     Active Substance: PREDNISONE
     Dosage: ONGOING WAS NO
     Route: 048
     Dates: start: 2018
  8. GABAPENTIN [Concomitant]
     Active Substance: GABAPENTIN
     Indication: Back pain
     Route: 048
     Dates: start: 2023
  9. BUPRENORPHINE TRANSDERMAL SYSTEM [Concomitant]
     Active Substance: BUPRENORPHINE
     Indication: Back pain
     Route: 062
     Dates: start: 2021
  10. AMLODIPINE [Concomitant]
     Active Substance: AMLODIPINE BESYLATE
     Indication: Heart valve incompetence
     Route: 048
  11. LORATADINE [Concomitant]
     Active Substance: LORATADINE
     Indication: Seasonal allergy
     Route: 048
  12. LEXAPRO [Concomitant]
     Active Substance: ESCITALOPRAM OXALATE
     Indication: Anxiety
     Route: 048
     Dates: start: 2023
  13. FOLIC ACID [Concomitant]
     Active Substance: FOLIC ACID
     Indication: Haemoglobin decreased
     Route: 048
     Dates: start: 2018
  14. OMEPRAZOLE [Concomitant]
     Active Substance: OMEPRAZOLE
     Route: 048
     Dates: start: 2018
  15. ERGOCALCIFEROL [Concomitant]
     Active Substance: ERGOCALCIFEROL
     Indication: Haemoglobin decreased
     Dosage: 50000 UNITS
     Route: 048
     Dates: start: 2018
  16. ACETAMINOPHEN [Concomitant]
     Active Substance: ACETAMINOPHEN
     Indication: Pain
     Route: 048
  17. FAMOTIDINE [Concomitant]
     Active Substance: FAMOTIDINE
     Route: 048
     Dates: start: 2018
  18. MELOXICAM [Concomitant]
     Active Substance: MELOXICAM
     Indication: Sciatica
     Route: 048
     Dates: start: 2023, end: 202404
  19. BETAMETHASONE\CLOTRIMAZOLE [Concomitant]
     Active Substance: BETAMETHASONE\CLOTRIMAZOLE
     Dosage: TAKEN AS NEEDED
     Route: 061
     Dates: start: 2018
  20. TRIAMCINOLONE [Concomitant]
     Active Substance: TRIAMCINOLONE
     Indication: Stomatitis
     Dosage: TAKEN AS NEEDED; APPLIED ON SORES IN THE MOUTH, TONGUE, INSIDE OF THE CHEEKS
     Route: 050
     Dates: start: 2018

REACTIONS (8)
  - Sciatica [Not Recovered/Not Resolved]
  - Diverticulitis [Not Recovered/Not Resolved]
  - Anxiety [Not Recovered/Not Resolved]
  - Asthenia [Not Recovered/Not Resolved]
  - Weight increased [Not Recovered/Not Resolved]
  - Skin ulcer [Not Recovered/Not Resolved]
  - Genital ulceration [Not Recovered/Not Resolved]
  - Stomatitis [Not Recovered/Not Resolved]

NARRATIVE: CASE EVENT DATE: 20230101
